FAERS Safety Report 10787551 (Version 2)
Quarter: 2015Q1

REPORT INFORMATION
  Report Type: Report from Study
  Country: DE (occurrence: DE)
  Receive Date: 20150212
  Receipt Date: 20150309
  Transmission Date: 20150721
  Serious: Yes (Life-Threatening, Hospitalization, Other)
  Sender: FDA-Public Use
  Company Number: DE-ABBVIE-15K-062-1345708-00

PATIENT
  Age: 48 Year
  Sex: Male

DRUGS (4)
  1. HUMIRA [Suspect]
     Active Substance: ADALIMUMAB
     Indication: CROHN^S DISEASE
     Route: 058
     Dates: start: 20130604, end: 20150101
  2. PREDNISOLON [Concomitant]
     Active Substance: PREDNISOLONE
     Indication: ADDISON^S DISEASE
     Dosage: 20MG TO 50MG, MORE THAN 10 YEARS
  3. ZANTAC [Concomitant]
     Active Substance: RANITIDINE HYDROCHLORIDE
     Indication: PRODUCT USED FOR UNKNOWN INDICATION
     Dosage: 300 MG BY WEIGHT
     Dates: start: 20100910, end: 20121130
  4. ZANTAC [Concomitant]
     Active Substance: RANITIDINE HYDROCHLORIDE
     Dosage: 300MG BY WEIGHT
     Dates: start: 2014

REACTIONS (4)
  - Coma [Not Recovered/Not Resolved]
  - Brain abscess [Not Recovered/Not Resolved]
  - Eye infection bacterial [Unknown]
  - Endophthalmitis [Unknown]

NARRATIVE: CASE EVENT DATE: 201312
